FAERS Safety Report 9496440 (Version 2)
Quarter: 2014Q1

REPORT INFORMATION
  Report Type: Spontaneous
  Country: DE (occurrence: DE)
  Receive Date: 20130904
  Receipt Date: 20140331
  Transmission Date: 20141002
  Serious: Yes (Hospitalization)
  Sender: FDA-Public Use
  Company Number: DE-JNJFOC-20130900836

PATIENT
  Age: 72 Year
  Sex: Female
  Weight: 92 kg

DRUGS (8)
  1. XARELTO [Suspect]
     Indication: EMBOLISM VENOUS
     Route: 048
  2. XARELTO [Suspect]
     Indication: PULMONARY EMBOLISM
     Route: 048
  3. GABAPENTIN [Concomitant]
     Route: 065
  4. TOREM [Concomitant]
     Route: 065
  5. RAMIPRIL [Concomitant]
     Route: 065
  6. VERAHEXAL [Concomitant]
     Route: 065
  7. BROMAZANIL [Concomitant]
     Route: 065
  8. PANTOPRAZOLE [Concomitant]
     Route: 065

REACTIONS (2)
  - Transaminases increased [Recovering/Resolving]
  - Rhabdomyolysis [Recovering/Resolving]
